FAERS Safety Report 8511779-1 (Version None)
Quarter: 2012Q3

REPORT INFORMATION
  Report Type: 
  Country: None (occurrence: None)
  Receive Date: 20120716
  Receipt Date: 20120709
  Transmission Date: 20120928
  Serious: Yes (Hospitalization, Other)
  Sender: FDA-Public Use
  Company Number: PHHO2012PL010220

PATIENT
  Sex: Male
  Weight: 96 kg

DRUGS (9)
  1. INSULIN [Concomitant]
     Indication: DIABETES MELLITUS
     Dosage: 20-20-20
     Dates: start: 20100101
  2. CARVEDILOL [Suspect]
     Indication: CARDIAC FAILURE
     Dosage: 6.25 MG - 3.125 MG
     Dates: start: 20120615
  3. FUROSEMIDE [Suspect]
     Indication: CARDIAC FAILURE
     Dosage: 80 - 80 - 0 MG, BID
     Route: 048
     Dates: start: 20090101, end: 20120418
  4. ALISKIREN [Suspect]
     Indication: CARDIAC FAILURE
     Dosage: UNK
     Route: 048
     Dates: start: 20100211
  5. FUROSEMIDE [Suspect]
     Dosage: 80 MG, UNK
     Dates: end: 20120615
  6. HYDROCHLOROTHIAZIDE [Concomitant]
     Indication: CARDIAC FAILURE
     Dosage: 12.5 MG, QD
     Route: 048
     Dates: start: 20110101
  7. ASPIRIN [Concomitant]
     Indication: CORONARY ARTERY DISEASE
     Dosage: 75 MG, QD
     Route: 048
     Dates: start: 20080101
  8. ENALAPRIL MALEATE [Suspect]
     Indication: CARDIAC FAILURE
     Dosage: UNK
     Route: 048
     Dates: start: 20100211
  9. SIMVASTATIN [Concomitant]
     Indication: CORONARY ARTERY DISEASE
     Dosage: 20 MG, QD
     Route: 048
     Dates: start: 20090101

REACTIONS (3)
  - CIRCULATORY COLLAPSE [None]
  - SYNCOPE [None]
  - HYPOTONIA [None]
